FAERS Safety Report 6574805-5 (Version None)
Quarter: 2010Q1

REPORT INFORMATION
  Report Type: 
  Country: None (occurrence: None)
  Receive Date: 20100209
  Receipt Date: 20100126
  Transmission Date: 20100710
  Serious: Yes (Other)
  Sender: FDA-Public Use
  Company Number: PHHY2010GB05472

PATIENT
  Age: 82 Year
  Sex: Male

DRUGS (2)
  1. OCTREOTIDE ACETATE [Suspect]
     Indication: NEUROENDOCRINE TUMOUR
     Dosage: UNK
     Route: 058
  2. OCTREOTIDE ACETATE [Suspect]

REACTIONS (3)
  - DISEASE PROGRESSION [None]
  - FEELING ABNORMAL [None]
  - INFLUENZA [None]
